FAERS Safety Report 20842536 (Version 1)
Quarter: 2022Q2

REPORT INFORMATION
  Report Type: Spontaneous
  Country: US (occurrence: US)
  Receive Date: 20220518
  Receipt Date: 20220518
  Transmission Date: 20220720
  Serious: Yes (Hospitalization, Other)
  Sender: FDA-Public Use
  Company Number: US-BRISTOL-MYERS SQUIBB COMPANY-2022-035508

PATIENT
  Age: 46 Year
  Sex: Female

DRUGS (1)
  1. ONUREG [Suspect]
     Active Substance: AZACITIDINE
     Indication: Product used for unknown indication
     Dosage: DOSE : 1 TABLET;     FREQ : ONCE DAILY FOR DAYS 1 THROUGH 14 OF A 28 DAY CYCLE
     Route: 048

REACTIONS (1)
  - Sepsis [Unknown]
